FAERS Safety Report 7749092-2 (Version None)
Quarter: 2011Q3

REPORT INFORMATION
  Report Type: 
  Country: None (occurrence: None)
  Receive Date: 20110914
  Receipt Date: 20110906
  Transmission Date: 20111222
  Serious: Yes (Death)
  Sender: FDA-Public Use
  Company Number: JP-JNJFOC-20110602323

PATIENT
  Sex: Male

DRUGS (7)
  1. EVAMYL [Concomitant]
     Indication: SCHIZOPHRENIA
     Route: 048
     Dates: start: 20110216, end: 20110531
  2. ROHYPNOL [Concomitant]
     Indication: SCHIZOPHRENIA
     Route: 048
     Dates: start: 20101222, end: 20110531
  3. RISPERDAL CONSTA [Suspect]
     Indication: SCHIZOPHRENIA
     Route: 030
     Dates: start: 20100916, end: 20110526
  4. CYMBALTA [Concomitant]
     Route: 048
     Dates: start: 20110427, end: 20110531
  5. CYMBALTA [Concomitant]
     Indication: DEPRESSION
     Route: 048
     Dates: start: 20110413, end: 20110426
  6. TASMOLIN [Concomitant]
     Indication: SCHIZOPHRENIA
     Route: 048
     Dates: start: 20110119, end: 20110531
  7. LIVALO [Concomitant]
     Indication: HYPERCHOLESTEROLAEMIA
     Route: 048
     Dates: start: 20110330, end: 20110531

REACTIONS (1)
  - COMPLETED SUICIDE [None]
